FAERS Safety Report 10484407 (Version 1)
Quarter: 2014Q3

REPORT INFORMATION
  Report Type: Spontaneous
  Country: US (occurrence: None)
  Receive Date: 20140926
  Receipt Date: 20140926
  Transmission Date: 20150326
  Serious: Yes (Other)
  Sender: FDA-Public Use
  Company Number: 2014HINLIT0870

PATIENT
  Age: 66 Year
  Sex: Male

DRUGS (8)
  1. FLUTICASONE PROPIONATE (FLUTICASONE PROPIONATE) (FLUTICASONE PROPIONATE) [Suspect]
     Active Substance: FLUTICASONE PROPIONATE
     Indication: PRODUCT USED FOR UNKNOWN INDICATION
  2. SALMETEROL [Concomitant]
     Active Substance: SALMETEROL
  3. ABACAVIR (ABACAVIR) [Suspect]
     Active Substance: ABACAVIR
     Indication: HIV INFECTION
  4. STAVUDINE (STAVUDINE) UNKNOWN [Suspect]
     Active Substance: STAVUDINE
     Indication: HIV INFECTION
  5. AMPRENAVIR [Suspect]
     Active Substance: AMPRENAVIR
     Indication: HIV INFECTION
  6. DIDANOSINE. [Suspect]
     Active Substance: DIDANOSINE
     Indication: HIV INFECTION
  7. RITONAVIR (RITONAVIR) [Suspect]
     Active Substance: RITONAVIR
     Indication: HIV INFECTION
  8. BUDESONIDE. [Concomitant]
     Active Substance: BUDESONIDE

REACTIONS (6)
  - Pain in extremity [None]
  - Femur fracture [None]
  - Drug interaction [None]
  - Osteonecrosis [None]
  - Cushing^s syndrome [None]
  - Oral candidiasis [None]
